FAERS Safety Report 5129990-9 (Version None)
Quarter: 2006Q4

REPORT INFORMATION
  Report Type: 
  Country: None (occurrence: None)
  Receive Date: 20061013
  Receipt Date: 20060929
  Transmission Date: 20070319
  Serious: Yes (Other)
  Sender: FDA-Public Use
  Company Number: 2006RR-03975

PATIENT
  Age: 62 Year
  Sex: Male

DRUGS (2)
  1. SIMVASTATIN [Suspect]
     Indication: BLOOD CHOLESTEROL INCREASED
     Dosage: 10 MG QD ORAL
     Route: 048
     Dates: start: 20050705, end: 20060503
  2. ACICLOVIR TOPICAL [Concomitant]

REACTIONS (1)
  - BLOOD GLUCOSE INCREASED [None]
